FAERS Safety Report 4848123-7 (Version None)
Quarter: 2005Q4

REPORT INFORMATION
  Report Type: 
  Country: None (occurrence: None)
  Receive Date: 20051208
  Receipt Date: 20051202
  Transmission Date: 20060501
  Serious: Yes (Hospitalization)
  Sender: FDA-Public Use
  Company Number: FR-AVENTIS-200514732EU

PATIENT
  Age: 60 Year
  Sex: Male

DRUGS (4)
  1. NATRIX [Suspect]
     Indication: HYPERTENSION
     Route: 048
     Dates: start: 20051001, end: 20051101
  2. LOXONIN [Concomitant]
     Dates: start: 20051001, end: 20051101
  3. SELBEX [Concomitant]
     Dates: start: 20051001, end: 20051101
  4. ALLEGRA [Concomitant]

REACTIONS (1)
  - ERYTHEMA MULTIFORME [None]
